FAERS Safety Report 6142913-9 (Version None)
Quarter: 2009Q2

REPORT INFORMATION
  Report Type: 
  Country: None (occurrence: None)
  Receive Date: 20090403
  Receipt Date: 20090326
  Transmission Date: 20091009
  Serious: Yes (Other)
  Sender: FDA-Public Use
  Company Number: GB-TEVA-189491ISR

PATIENT

DRUGS (5)
  1. SODIUM CHLORIDE [Suspect]
  2. CALCIUM CHLORIDE DIHYDRATE [Suspect]
  3. DEXTRIN [Suspect]
     Indication: PERITONEAL DIALYSIS
     Route: 033
  4. MAGNESIUM CHLORIDE ANHYDROUS [Suspect]
  5. SODIUM LACTATE IN PLASTIC CONTAINER [Suspect]

REACTIONS (1)
  - PERITONITIS SCLEROSING [None]
